FAERS Safety Report 5152002-8 (Version None)
Quarter: 2006Q4

REPORT INFORMATION
  Report Type: 
  Country: None (occurrence: None)
  Receive Date: 20061116
  Receipt Date: 20061106
  Transmission Date: 20070319
  Serious: Yes (Hospitalization)
  Sender: FDA-Public Use
  Company Number: DE-ELI_LILLY_AND_COMPANY-DE200611001250

PATIENT
  Age: 32 Year
  Sex: Male
  Weight: 80 kg

DRUGS (3)
  1. ZYPREXA [Suspect]
     Indication: BIPOLAR I DISORDER
     Dosage: 20 MG, DAILY (1/D)
     Route: 048
     Dates: start: 20051013, end: 20051024
  2. ZYPREXA [Suspect]
     Dosage: 30 MG, DAILY (1/D)
     Route: 048
     Dates: start: 20051025
  3. VALPROATE SODIUM [Concomitant]
     Dosage: 1600 MG, DAILY (1/D)
     Route: 048
     Dates: start: 20051025

REACTIONS (7)
  - ATRIAL FIBRILLATION [None]
  - BLOOD PROLACTIN INCREASED [None]
  - BLOOD TRIGLYCERIDES INCREASED [None]
  - DRUG SCREEN POSITIVE [None]
  - EPIGASTRIC DISCOMFORT [None]
  - PRESCRIBED OVERDOSE [None]
  - TACHYARRHYTHMIA [None]
